FAERS Safety Report 4766888-X (Version None)
Quarter: 2005Q3

REPORT INFORMATION
  Report Type: 
  Country: None (occurrence: None)
  Receive Date: 20050909
  Receipt Date: 20050826
  Transmission Date: 20060218
  Serious: Yes (Other)
  Sender: FDA-Public Use
  Company Number: 2005110139

PATIENT
  Age: 38 Year
  Sex: Male
  Weight: 81.6475 kg

DRUGS (4)
  1. SILDENAFIL CITRATE [Suspect]
     Indication: ERECTILE DYSFUNCTION
     Dosage: 100 MG (100 MG, 1 IN 1 D), ORAL
     Route: 048
     Dates: start: 20020802
  2. APO-OXAZEPAM (OXAZEPAM) [Concomitant]
  3. ANTIDEPRESSANTS (ANTIDEPRESSANTS) [Concomitant]
  4. EFFEXOR [Concomitant]

REACTIONS (10)
  - ABNORMAL SENSATION IN EYE [None]
  - AMNESIA [None]
  - BLINDNESS [None]
  - CYANOPSIA [None]
  - ERYTHEMA [None]
  - EUPHORIC MOOD [None]
  - HEADACHE [None]
  - NEURALGIA [None]
  - SENSATION OF PRESSURE [None]
  - VISUAL ACUITY REDUCED [None]
